FAERS Safety Report 5609510-2 (Version None)
Quarter: 2008Q1

REPORT INFORMATION
  Report Type: 
  Country: None (occurrence: None)
  Receive Date: 20080111
  Receipt Date: 20070326
  Transmission Date: 20080703
  Serious: Yes (Other)
  Sender: FDA-Public Use
  Company Number: HQWYE437511JUN04

PATIENT
  Age: 58 Year
  Sex: Female
  Weight: 65.83 kg

DRUGS (1)
  1. PREMPRO [Suspect]
     Dates: start: 19980301, end: 20020701

REACTIONS (1)
  - BREAST CANCER [None]
